FAERS Safety Report 10058712 (Version 3)
Quarter: 2014Q2

REPORT INFORMATION
  Report Type: Spontaneous
  Country: US (occurrence: US)
  Receive Date: 20140404
  Receipt Date: 20140602
  Transmission Date: 20141212
  Serious: No
  Sender: FDA-Public Use
  Company Number: US-B.I. PHARMACEUTICALS,INC./RIDGEFIELD-2014-BI-13172BP

PATIENT
  Age: 57 Year
  Sex: Female
  Weight: 78 kg

DRUGS (12)
  1. SPIRIVA [Suspect]
     Indication: CHRONIC OBSTRUCTIVE PULMONARY DISEASE
     Dosage: 18 MCG
     Route: 055
     Dates: start: 20140301
  2. LEVOTHYROXINE [Concomitant]
     Indication: HYPOTHYROIDISM
     Dosage: 75 MCG
     Route: 048
  3. POTASSIUM [Concomitant]
     Dosage: 20 MEQ
     Route: 048
  4. CARVEDILOL [Concomitant]
     Dosage: 12.5 MG
     Route: 048
  5. ATORVASTATIN [Concomitant]
     Indication: BLOOD CHOLESTEROL INCREASED
     Dosage: 80 MG
     Route: 048
  6. ADVAIR [Concomitant]
     Indication: CHRONIC OBSTRUCTIVE PULMONARY DISEASE
     Dosage: STRENGTH: 1 INHALATION; DAILY DOSE: 2 INHALATION
     Route: 055
  7. LISINOPRIL [Concomitant]
     Dosage: 10 MG
     Route: 048
  8. VERAPAMIL [Concomitant]
     Dosage: 120 MG
     Route: 048
  9. FUROSEMIDE [Concomitant]
     Dosage: 40 MG
     Route: 048
  10. ASPIRIN [Concomitant]
     Dosage: 325 MG
     Route: 048
  11. PREVACID [Concomitant]
     Indication: DYSPEPSIA
     Dosage: 15 MG
     Route: 048
  12. VENTOLIN [Concomitant]
     Indication: CHRONIC OBSTRUCTIVE PULMONARY DISEASE
     Route: 055

REACTIONS (2)
  - Drug ineffective [Not Recovered/Not Resolved]
  - Product quality issue [Not Recovered/Not Resolved]
